FAERS Safety Report 6967618-3 (Version None)
Quarter: 2010Q3

REPORT INFORMATION
  Report Type: 
  Country: None (occurrence: None)
  Receive Date: 20100907
  Receipt Date: 20100826
  Transmission Date: 20110219
  Serious: Yes (Death, Other)
  Sender: FDA-Public Use
  Company Number: FI-PFIZER INC-2010103724

PATIENT
  Age: 76 Year
  Sex: Male
  Weight: 88 kg

DRUGS (23)
  1. ECALTA [Suspect]
     Indication: FUNGAL INFECTION
     Dosage: 200 MG, SINGLE
     Route: 042
     Dates: start: 20090908, end: 20090908
  2. ECALTA [Suspect]
     Dosage: 100 MG, 1X/DAY
     Route: 042
     Dates: start: 20090909
  3. VANCOMYCIN HCL [Concomitant]
     Dosage: UNK
     Route: 042
  4. MEROPENEM [Concomitant]
     Dosage: 1 G, 3X/DAY
     Dates: start: 20090905, end: 20090911
  5. LANTUS [Concomitant]
     Dosage: 45 IU, 1X/DAY, AT 8.00 P.M.
  6. PREDNISOLONE [Concomitant]
     Dosage: 20 MG, 1X/DAY
     Dates: start: 20090907
  7. NOVORAPID [Concomitant]
     Dosage: 6-12 IU 4X/DAY, AT MEALS
  8. THYROXIN [Concomitant]
     Dosage: 0.1 MG, ALTERNATE DAY
  9. DURAGESIC-100 [Concomitant]
     Dosage: 25 UG / 72 HOURS
     Route: 062
  10. OXYCODONE HCL [Concomitant]
     Dosage: 2-6 MG AS NEEDED
  11. FRAGMIN [Concomitant]
     Dosage: 5000 IU, 1X/DAY
     Route: 058
  12. PRIMASPAN [Concomitant]
     Dosage: 100 MG, 1X/DAY
  13. FURESIS [Concomitant]
     Dosage: 40 MG, 2X/DAY
  14. SPIRESIS [Concomitant]
     Dosage: 12.5 MG, 2X/DAY
  15. DUREKAL [Concomitant]
     Dosage: 1 G, AS NEEDED
  16. NULYTELY [Concomitant]
     Dosage: 1 SACHET AS NEEDED
  17. TENOX [Concomitant]
     Dosage: 20 MG, FOR NIGHT AS NEEDED
  18. CARDACE [Concomitant]
     Dosage: 2.5 MG, 1X/DAY
  19. ORMOX [Concomitant]
     Dosage: 10 MG, 2X/DAY
  20. VISCOTEARS [Concomitant]
     Dosage: 1 GTT, AS NEEDED TO BOTH EYES
     Route: 047
  21. BISOPROLOL [Concomitant]
     Dosage: 2.5 MG, 1X/DAY
  22. TAZOCIN [Concomitant]
     Dosage: UNK
     Dates: end: 20090905
  23. DALACIN [Concomitant]

REACTIONS (3)
  - GASTROINTESTINAL HAEMORRHAGE [None]
  - LIVER INJURY [None]
  - SEPTIC SHOCK [None]
